FAERS Safety Report 26016292 (Version 1)
Quarter: 2025Q4

REPORT INFORMATION
  Report Type: Spontaneous
  Country: US (occurrence: US)
  Receive Date: 20251110
  Receipt Date: 20251110
  Transmission Date: 20260118
  Serious: No
  Sender: ROCHE
  Company Number: US-ROCHE-10000425831

PATIENT
  Sex: Female

DRUGS (2)
  1. ACTEMRA [Suspect]
     Active Substance: TOCILIZUMAB
     Indication: Product used for unknown indication
     Route: 058
  2. ACTEMRA [Suspect]
     Active Substance: TOCILIZUMAB
     Route: 058

REACTIONS (5)
  - Exposure via skin contact [Unknown]
  - Underdose [Unknown]
  - Product dose omission issue [Unknown]
  - Illness [Unknown]
  - Device defective [Unknown]

NARRATIVE: CASE EVENT DATE: 20251023
